FAERS Safety Report 7487294-3 (Version None)
Quarter: 2011Q2

REPORT INFORMATION
  Report Type: 
  Country: None (occurrence: None)
  Receive Date: 20110518
  Receipt Date: 20110411
  Transmission Date: 20111010
  Serious: Yes (Other)
  Sender: FDA-Public Use
  Company Number: US-BAYER-201042017NA

PATIENT
  Age: 36 Year
  Sex: Female
  Weight: 65.76 kg

DRUGS (8)
  1. PHENTERMINE [Concomitant]
     Indication: WEIGHT DECREASED
  2. PRISTIQ [Concomitant]
     Indication: DEPRESSION
  3. LEVOTHYROXINE SODIUM [Concomitant]
     Indication: HYPOTHYROIDISM
  4. YAZ [Suspect]
     Indication: CONTRACEPTION
     Dosage: UNK UNK, UNK
     Route: 048
     Dates: start: 20070701, end: 20080501
  5. YAZ [Suspect]
     Indication: PREMENSTRUAL SYNDROME
     Dosage: UNK
     Dates: start: 20080901, end: 20090801
  6. CYMBALTA [Concomitant]
     Indication: DEPRESSION
  7. YAZ [Suspect]
     Dosage: UNK
     Dates: end: 20071001
  8. PRISTIQ [Concomitant]
     Indication: ANXIETY

REACTIONS (6)
  - ABDOMINAL PAIN [None]
  - MENTAL DISORDER [None]
  - CHOLELITHIASIS [None]
  - EMOTIONAL DISORDER [None]
  - CHOLECYSTITIS CHRONIC [None]
  - CHEST PAIN [None]
